FAERS Safety Report 17655980 (Version 7)
Quarter: 2020Q3

REPORT INFORMATION
  Report Type: Spontaneous
  Country: US (occurrence: US)
  Receive Date: 20200410
  Receipt Date: 20200717
  Transmission Date: 20201102
  Serious: Yes (Other)
  Sender: FDA-Public Use
  Company Number: US-CELGENEUS-USA-20200401965

PATIENT
  Sex: Female

DRUGS (2)
  1. THALOMID [Suspect]
     Active Substance: THALIDOMIDE
     Dosage: 150 MILLIGRAM
     Route: 048
     Dates: start: 202005
  2. THALOMID [Suspect]
     Active Substance: THALIDOMIDE
     Indication: BONE CANCER
     Dosage: 200 MILLIGRAM
     Route: 048
     Dates: start: 202004

REACTIONS (1)
  - Human chorionic gonadotropin increased [Not Recovered/Not Resolved]
